FAERS Safety Report 4658531-5 (Version None)
Quarter: 2005Q2

REPORT INFORMATION
  Report Type: 
  Country: None (occurrence: None)
  Receive Date: 20050511
  Receipt Date: 20050404
  Transmission Date: 20051028
  Serious: Yes (Death)
  Sender: FDA-Public Use
  Company Number: PL-JNJFOC-20041202114

PATIENT
  Sex: Female

DRUGS (5)
  1. HALOPERIDOL [Suspect]
     Indication: DRUG USE FOR UNKNOWN INDICATION
     Dosage: 1-4 MG/DAY
  2. WIDE-SPECTRUM ANTIBIOTICS [Concomitant]
  3. CATECHOLAMINES [Concomitant]
  4. PARENTHERAL NUTRITION [Concomitant]
  5. H2-BLOCKERS [Concomitant]

REACTIONS (5)
  - CARDIAC ARREST [None]
  - CHOLELITHIASIS [None]
  - DRUG INEFFECTIVE [None]
  - LOSS OF CONSCIOUSNESS [None]
  - PANCREATITIS [None]
